FAERS Safety Report 8185565-9 (Version None)
Quarter: 2012Q1

REPORT INFORMATION
  Report Type: 
  Country: None (occurrence: None)
  Receive Date: 20120305
  Receipt Date: 20120302
  Transmission Date: 20120608
  Serious: Yes (Other)
  Sender: FDA-Public Use
  Company Number: PHHY2012AU011041

PATIENT
  Sex: Female

DRUGS (1)
  1. GILENYA [Suspect]
     Indication: MULTIPLE SCLEROSIS
     Dosage: UNK UKN, OT
     Dates: start: 20110828

REACTIONS (6)
  - SEBORRHOEA [None]
  - BALANCE DISORDER [None]
  - SENSATION OF HEAVINESS [None]
  - ALOPECIA [None]
  - PIGMENTATION DISORDER [None]
  - ADDISON'S DISEASE [None]
